FAERS Safety Report 8853186 (Version 2)
Quarter: 2013Q4

REPORT INFORMATION
  Report Type: Spontaneous
  Country: US (occurrence: US)
  Receive Date: 20121022
  Receipt Date: 20131201
  Transmission Date: 20140711
  Serious: No
  Sender: FDA-Public Use
  Company Number: US-009507513-1210USA002231

PATIENT
  Sex: Female

DRUGS (2)
  1. DULERA [Suspect]
     Dosage: UNK
     Route: 055
     Dates: start: 201111
  2. DULERA [Suspect]
     Dosage: 2 PUFFS, BID (STRENGTH:200/5 MCG 200-5 MG ONE INHALATION AEROSOL)
     Route: 055

REACTIONS (4)
  - Drug dose omission [Unknown]
  - Product quality issue [Unknown]
  - Drug dose omission [Unknown]
  - No adverse event [Unknown]
